FAERS Safety Report 7431883-9 (Version None)
Quarter: 2011Q2

REPORT INFORMATION
  Report Type: 
  Country: None (occurrence: None)
  Receive Date: 20110422
  Receipt Date: 20110412
  Transmission Date: 20111010
  Serious: Yes (Hospitalization)
  Sender: FDA-Public Use
  Company Number: FR-JNJFOC-20110405967

PATIENT
  Age: 35 Year
  Sex: Male

DRUGS (8)
  1. IBUPROFEN [Suspect]
     Indication: PYREXIA
     Route: 048
  2. OXOMEMAZINE [Suspect]
     Indication: PRODUCT USED FOR UNKNOWN INDICATION
     Route: 048
  3. TERBINAFINE [Suspect]
     Indication: PRODUCT USED FOR UNKNOWN INDICATION
     Route: 065
  4. AMOXICILLIN [Suspect]
     Indication: TONSILLITIS
     Route: 048
  5. TAVANIC [Suspect]
     Indication: PYREXIA
     Route: 048
  6. PARACETAMOL [Suspect]
     Route: 048
  7. PARACETAMOL [Suspect]
     Indication: PYREXIA
     Route: 048
  8. DETURGYLONE [Suspect]
     Indication: PRODUCT USED FOR UNKNOWN INDICATION
     Route: 045

REACTIONS (3)
  - PHARYNGITIS [None]
  - RASH ERYTHEMATOUS [None]
  - WOUND SECRETION [None]
